FAERS Safety Report 9159622 (Version 1)
Quarter: 2013Q1

REPORT INFORMATION
  Report Type: Spontaneous
  Country: US (occurrence: None)
  Receive Date: 20130312
  Receipt Date: 20130312
  Transmission Date: 20140127
  Serious: Yes (Hospitalization)
  Sender: FDA-Public Use
  Company Number: None

PATIENT
  Age: 49 Year
  Sex: Male
  Weight: 104.33 kg

DRUGS (1)
  1. BUPROPRION XL 300MG [Suspect]
     Indication: DEPRESSION
     Dates: start: 20100203, end: 20100317

REACTIONS (4)
  - Product substitution issue [None]
  - Depression [None]
  - Suicidal ideation [None]
  - Self-injurious ideation [None]
